FAERS Safety Report 16128590 (Version 1)
Quarter: 2019Q1

REPORT INFORMATION
  Report Type: Report from Study
  Country: None (occurrence: BR)
  Receive Date: 20190328
  Receipt Date: 20190328
  Transmission Date: 20190418
  Serious: Yes (Other)
  Sender: FDA-Public Use
  Company Number: BR-ABBVIE-19K-020-2721952-00

PATIENT
  Sex: Female
  Weight: 60 kg

DRUGS (1)
  1. HUMIRA [Suspect]
     Active Substance: ADALIMUMAB
     Indication: CROHN^S DISEASE
     Route: 058
     Dates: start: 201808, end: 20190107

REACTIONS (4)
  - Pulmonary mass [Unknown]
  - Disseminated tuberculosis [Unknown]
  - Abdominal mass [Unknown]
  - Intracranial mass [Unknown]

NARRATIVE: CASE EVENT DATE: 201901
